FAERS Safety Report 14969348 (Version 1)
Quarter: 2018Q2

REPORT INFORMATION
  Report Type: Spontaneous
  Country: IT (occurrence: IT)
  Receive Date: 20180604
  Receipt Date: 20180604
  Transmission Date: 20180711
  Serious: Yes (Hospitalization)
  Sender: FDA-Public Use
  Company Number: IT-JUBILANT CADISTA PHARMACEUTICALS-2018JUB00204

PATIENT
  Age: 40 Day
  Sex: Female
  Weight: 3.19 kg

DRUGS (3)
  1. CARBAMAZEPINE. [Suspect]
     Active Substance: CARBAMAZEPINE
     Dosage: 600 MG, 2X/DAY
     Route: 064
  2. CARBAMAZEPINE. [Suspect]
     Active Substance: CARBAMAZEPINE
     Indication: EPILEPSY
     Dosage: 400 MG, 2X/DAY
     Route: 064
  3. CARBAMAZEPINE. [Suspect]
     Active Substance: CARBAMAZEPINE
     Dosage: 600 MG, 2X/DAY
     Route: 063

REACTIONS (7)
  - Poor sucking reflex [Recovered/Resolved]
  - Regurgitation [Recovered/Resolved]
  - Exposure via breast milk [Recovered/Resolved]
  - Weight gain poor [Recovered/Resolved]
  - Foetal exposure during pregnancy [Recovered/Resolved]
  - Vomiting [Recovered/Resolved]
  - Anticonvulsant drug level increased [Recovered/Resolved]
